FAERS Safety Report 17530166 (Version 1)
Quarter: 2020Q1

REPORT INFORMATION
  Report Type: Spontaneous
  Country: US (occurrence: US)
  Receive Date: 20200311
  Receipt Date: 20200311
  Transmission Date: 20200409
  Serious: No
  Sender: FDA-Public Use
  Company Number: US-GALDERMA-US19059976

PATIENT

DRUGS (3)
  1. MOISTURIZER [Concomitant]
     Active Substance: UNSPECIFIED INGREDIENT
     Indication: PRODUCT USED FOR UNKNOWN INDICATION
     Route: 061
  2. DIFFERIN GEL [Suspect]
     Active Substance: ADAPALENE
     Indication: ACNE
     Dosage: 0.1%
     Route: 061
  3. DIFFERIN GEL [Suspect]
     Active Substance: ADAPALENE
     Indication: SCAR

REACTIONS (6)
  - Pain of skin [Unknown]
  - Pruritus [Unknown]
  - Inappropriate schedule of product administration [Recovered/Resolved]
  - Acne [Unknown]
  - Underdose [Recovered/Resolved]
  - Skin exfoliation [Unknown]
